FAERS Safety Report 5965030-7 (Version None)
Quarter: 2008Q4

REPORT INFORMATION
  Report Type: 
  Country: None (occurrence: None)
  Receive Date: 20081125
  Receipt Date: 20081111
  Transmission Date: 20090506
  Serious: Yes (Life-Threatening, Hospitalization, Other)
  Sender: FDA-Public Use
  Company Number: JP-NOVOPROD-281070

PATIENT
  Sex: Male
  Weight: 61 kg

DRUGS (18)
  1. INNOLET N CHU [Suspect]
     Indication: TYPE 2 DIABETES MELLITUS
     Dates: end: 20010621
  2. INNOLET R CHU [Suspect]
     Indication: TYPE 2 DIABETES MELLITUS
     Dates: start: 20060701
  3. CARDENALIN [Suspect]
     Indication: HYPERTENSION
     Dosage: 1 MG, QD
     Route: 048
     Dates: start: 20060401, end: 20070601
  4. NORVASC [Suspect]
     Indication: HYPERTENSION
     Dosage: 10 MG, QD
     Route: 048
     Dates: end: 20070731
  5. LENDORM [Suspect]
     Indication: INSOMNIA
     Dosage: .25 MG, QD
     Route: 048
     Dates: end: 20070125
  6. GASLON N [Concomitant]
     Indication: GASTRITIS
     Dosage: 4 MG, QD
     Route: 048
  7. BLOPRESS [Concomitant]
     Indication: HYPERTENSION
     Dosage: 8 MG, QD
     Route: 048
  8. PLETAL [Concomitant]
     Indication: STREPTOCOCCAL IDENTIFICATION TEST
     Dosage: 100 MG, QD
     Route: 048
  9. TAKEPRON [Concomitant]
     Indication: REFLUX OESOPHAGITIS
     Dosage: 15 MG, QD
     Route: 048
  10. RESPLEN [Concomitant]
     Indication: BRONCHITIS
     Dosage: 60 MG, QD
     Route: 048
  11. GANATON [Concomitant]
     Indication: GASTRITIS
     Dosage: 150 MG, QD
     Route: 048
  12. THEOLONG [Concomitant]
     Indication: BRONCHITIS
     Dosage: 200 MG, QD
     Route: 048
  13. NELBON [Concomitant]
     Indication: INSOMNIA
     Dosage: 5 MG, QD
     Route: 048
  14. HALCION [Concomitant]
     Indication: INSOMNIA
     Dosage: .25 MG, QD
     Route: 048
  15. PREDNISOLONE [Concomitant]
     Indication: HYPOGLYCAEMIA
     Dosage: 15 MG, QD
     Route: 048
     Dates: start: 20070117, end: 20081106
  16. NESPO [Concomitant]
     Dates: end: 20081106
  17. DECADRON [Concomitant]
     Indication: HYPOGLYCAEMIA
     Dosage: 2 MG, QD
     Route: 048
     Dates: start: 20070501
  18. EPOGIN [Concomitant]
     Dosage: 1500 IU INJECTION, QD

REACTIONS (5)
  - ANTI-INSULIN ANTIBODY DECREASED [None]
  - CATHETER RELATED INFECTION [None]
  - HYPOGLYCAEMIA [None]
  - HYPOGLYCAEMIC UNCONSCIOUSNESS [None]
  - SHUNT OCCLUSION [None]
